FAERS Safety Report 6532060-6 (Version None)
Quarter: 2009Q4

REPORT INFORMATION
  Report Type: 
  Country: None (occurrence: None)
  Receive Date: 20091228
  Receipt Date: 20090204
  Transmission Date: 20100525
  Serious: Yes (Other)
  Sender: FDA-Public Use
  Company Number: 20090030

PATIENT
  Age: 51 Year
  Sex: Male

DRUGS (1)
  1. VENOFER [Suspect]
     Indication: RENAL FAILURE
     Dosage: 100 MG INTRAVENOUS
     Route: 042
     Dates: start: 20090126, end: 20090126

REACTIONS (3)
  - DYSPNOEA [None]
  - PRURITUS [None]
  - RASH [None]
